FAERS Safety Report 15368153 (Version 1)
Quarter: 2018Q3

REPORT INFORMATION
  Report Type: Spontaneous
  Country: ES (occurrence: ES)
  Receive Date: 20180910
  Receipt Date: 20180910
  Transmission Date: 20181010
  Serious: Yes (Hospitalization, Other)
  Sender: FDA-Public Use
  Company Number: ES-SHIRE-ES201833693

PATIENT

DRUGS (4)
  1. 476 (MESALAZINE/MESALAMINE) [Suspect]
     Active Substance: MESALAMINE
     Indication: COLITIS ULCERATIVE
     Dosage: UNK, UNKNOWN
     Route: 065
     Dates: start: 2007
  2. AZATHIOPRINE. [Suspect]
     Active Substance: AZATHIOPRINE
     Indication: IMMUNODEFICIENCY COMMON VARIABLE
     Dosage: UNK UNK, UNKNOWN
     Route: 065
     Dates: start: 2007
  3. IMMUNE GLOBULIN [Suspect]
     Active Substance: HUMAN IMMUNOGLOBULIN G
     Indication: IMMUNODEFICIENCY COMMON VARIABLE
     Dosage: UNK UNK, UNKNOWN
     Route: 042
     Dates: start: 2007
  4. IMMUNE GLOBULIN [Suspect]
     Active Substance: HUMAN IMMUNOGLOBULIN G
     Dosage: 500 MG/KG, Q2WEEKS
     Route: 042
     Dates: start: 2007

REACTIONS (21)
  - Thrombocytopenia [Unknown]
  - Onychomycosis [Recovered/Resolved]
  - Skin papilloma [Recovered/Resolved]
  - Evans syndrome [Unknown]
  - Campylobacter infection [Unknown]
  - Klebsiella infection [Recovering/Resolving]
  - Norovirus test positive [Unknown]
  - Weight decreased [Unknown]
  - Vulvovaginal candidiasis [Recovering/Resolving]
  - Respiratory tract infection bacterial [Recovering/Resolving]
  - Gastrointestinal disorder [Recovering/Resolving]
  - Inflammatory bowel disease [Recovering/Resolving]
  - Oral candidiasis [Recovering/Resolving]
  - Exposure during pregnancy [Unknown]
  - Weight decreased [Recovering/Resolving]
  - Aphthous ulcer [Recovered/Resolved]
  - Peliosis hepatis [Unknown]
  - Pneumococcal infection [Recovering/Resolving]
  - Splenomegaly [Unknown]
  - Gastrointestinal disorder [Unknown]
  - Diarrhoea [Unknown]

NARRATIVE: CASE EVENT DATE: 2012
